FAERS Safety Report 5787389-6 (Version None)
Quarter: 2008Q2

REPORT INFORMATION
  Report Type: 
  Country: None (occurrence: None)
  Receive Date: 20080623
  Receipt Date: 20080623
  Transmission Date: 20081010
  Serious: No
  Sender: FDA-Public Use
  Company Number: None

PATIENT
  Age: 61 Year
  Sex: Male

DRUGS (2)
  1. VENLAFAXINE HCL [Suspect]
     Indication: DEPRESSION
     Dosage: 375 MG BID PO
     Route: 048
     Dates: start: 20080409
  2. SIMVASTATIN [Suspect]
     Indication: HYPERLIPIDAEMIA
     Dosage: 80 MG HS PO
     Route: 048
     Dates: start: 20071217

REACTIONS (5)
  - BLOOD CREATINE PHOSPHOKINASE INCREASED [None]
  - DEPRESSION [None]
  - GAIT DISTURBANCE [None]
  - MYALGIA [None]
  - PRESYNCOPE [None]
